APPROVED DRUG PRODUCT: GANTANOL
Active Ingredient: SULFAMETHOXAZOLE
Strength: 500MG/5ML
Dosage Form/Route: SUSPENSION;ORAL
Application: N013664 | Product #002
Applicant: HOFFMANN LA ROCHE INC
Approved: Approved Prior to Jan 1, 1982 | RLD: No | RS: No | Type: DISCN